FAERS Safety Report 25578706 (Version 1)
Quarter: 2025Q3

REPORT INFORMATION
  Report Type: Spontaneous
  Country: IL (occurrence: IL)
  Receive Date: 20250718
  Receipt Date: 20250718
  Transmission Date: 20251020
  Serious: Yes (Life-Threatening, Hospitalization)
  Sender: INCYTE
  Company Number: IL-002147023-NVSC2025IL112754

PATIENT
  Age: 47 Year

DRUGS (13)
  1. RUXOLITINIB [Suspect]
     Active Substance: RUXOLITINIB
     Indication: Graft versus host disease
     Route: 065
  2. CLOBETASOL PROPIONATE [Concomitant]
     Active Substance: CLOBETASOL PROPIONATE
     Indication: Pemphigoid
     Route: 065
  3. PREDNISONE [Concomitant]
     Active Substance: PREDNISONE
     Indication: Pemphigoid
     Dosage: 0.8 MG/KG, QD
     Route: 065
  4. MINOCYCLINE [Concomitant]
     Active Substance: MINOCYCLINE HYDROCHLORIDE
     Indication: Pemphigoid
     Route: 065
  5. DOXYCYCLINE [Concomitant]
     Active Substance: DOXYCYCLINE
     Indication: Pemphigoid
     Route: 065
  6. DAPSONE [Concomitant]
     Active Substance: DAPSONE
     Indication: Pemphigoid
     Route: 065
  7. IMMUNE GLOBULIN NOS [Concomitant]
     Active Substance: IMMUNE GLOBULIN NOS
     Indication: Pemphigoid
     Route: 065
  8. METHOTREXATE [Concomitant]
     Active Substance: METHOTREXATE
     Indication: Pemphigoid
     Dosage: 5 MG, QW
     Route: 065
  9. BELUMOSUDIL [Concomitant]
     Active Substance: BELUMOSUDIL
     Indication: Graft versus host disease
     Dosage: 200 MG, QD
     Route: 065
  10. HUMAN PLASMA [Concomitant]
     Active Substance: HUMAN PLASMA
     Indication: Pemphigoid
     Route: 065
  11. HUMAN PLASMA [Concomitant]
     Active Substance: HUMAN PLASMA
     Route: 065
  12. DUPILUMAB [Concomitant]
     Active Substance: DUPILUMAB
     Indication: Pemphigoid
     Route: 065
  13. DUPILUMAB [Concomitant]
     Active Substance: DUPILUMAB
     Route: 065

REACTIONS (2)
  - Pneumonia [Unknown]
  - Systemic infection [Unknown]
